FAERS Safety Report 8011235-3 (Version None)
Quarter: 2011Q4

REPORT INFORMATION
  Report Type: 
  Country: None (occurrence: None)
  Receive Date: 20111227
  Receipt Date: 20111227
  Transmission Date: 20120403
  Serious: Yes (Hospitalization)
  Sender: FDA-Public Use
  Company Number: None

PATIENT
  Age: 34 Year
  Sex: Male
  Weight: 94.9 kg

DRUGS (5)
  1. NICOTINE 21 MG PATCH [Concomitant]
     Route: 062
  2. CITALOPRAM HYDROBROMIDE [Suspect]
     Indication: DEPRESSION
     Dosage: 20MG
     Route: 048
     Dates: start: 20111101, end: 20111104
  3. CITALOPRAM HYDROBROMIDE [Suspect]
     Indication: SUICIDAL IDEATION
     Dosage: 20MG
     Route: 048
     Dates: start: 20111101, end: 20111104
  4. CITALOPRAM HYDROBROMIDE [Concomitant]
     Dosage: 40MG
     Route: 048
     Dates: start: 20111105, end: 20111106
  5. PROPRANOLOL [Concomitant]
     Route: 048

REACTIONS (1)
  - CONVULSION [None]
